FAERS Safety Report 20041146 (Version 2)
Quarter: 2021Q4

REPORT INFORMATION
  Report Type: Report from Study
  Country: US (occurrence: US)
  Receive Date: 20211107
  Receipt Date: 20211112
  Transmission Date: 20220303
  Serious: Yes (Death)
  Sender: FDA-Public Use
  Company Number: US-NOVARTISPH-NVSC2021US254122

PATIENT
  Age: 70 Year
  Sex: Female

DRUGS (1)
  1. AFINITOR [Suspect]
     Active Substance: EVEROLIMUS
     Indication: Product used for unknown indication
     Dosage: 10 MG, QD
     Route: 048
     Dates: start: 20210506

REACTIONS (1)
  - Death [Fatal]

NARRATIVE: CASE EVENT DATE: 20211101
